FAERS Safety Report 19492629 (Version 1)
Quarter: 2021Q3

REPORT INFORMATION
  Report Type: Spontaneous
  Country: US (occurrence: US)
  Receive Date: 20210705
  Receipt Date: 20210705
  Transmission Date: 20211014
  Serious: Yes (Other)
  Sender: FDA-Public Use
  Company Number: US-HIKMA PHARMACEUTICALS USA INC.-US-H14001-21-54768

PATIENT
  Age: 71 Year
  Sex: Male

DRUGS (8)
  1. LOSARTAN. [Concomitant]
     Active Substance: LOSARTAN
     Indication: GLOMERULONEPHRITIS MINIMAL LESION
     Dosage: TAPERED DOSE FOR THE FOLLOWING 4 WEEKS
     Route: 065
  2. LOSARTAN. [Concomitant]
     Active Substance: LOSARTAN
     Indication: IGA NEPHROPATHY
  3. PREDNISONE. [Suspect]
     Active Substance: PREDNISONE
     Indication: IGA NEPHROPATHY
  4. AMLODIPINE [Concomitant]
     Active Substance: AMLODIPINE BESYLATE
     Indication: HYPERTENSION
     Route: 065
  5. PANTOPRAZOLE [Concomitant]
     Active Substance: PANTOPRAZOLE
     Indication: GASTROOESOPHAGEAL REFLUX DISEASE
     Route: 065
  6. PREDNISONE. [Suspect]
     Active Substance: PREDNISONE
     Indication: GLOMERULONEPHRITIS MINIMAL LESION
     Dosage: TAPERED SLOWLY OVER A MORE EXTENDED PERIOD OF 6 MONTHS
     Route: 065
  7. IPILIMUMAB [Concomitant]
     Active Substance: IPILIMUMAB
     Indication: MALIGNANT MELANOMA
     Dosage: UNKNOWN
     Route: 065
  8. NIVOLUMAB [Concomitant]
     Active Substance: NIVOLUMAB
     Indication: MALIGNANT MELANOMA
     Dosage: UNKNOWN
     Route: 065

REACTIONS (4)
  - Hyperglycaemia [Unknown]
  - Cataract [Unknown]
  - Drug intolerance [Unknown]
  - Weight increased [Unknown]
